FAERS Safety Report 8022889-X (Version None)
Quarter: 2011Q4

REPORT INFORMATION
  Report Type: 
  Country: None (occurrence: None)
  Receive Date: 20111230
  Receipt Date: 20111217
  Transmission Date: 20120403
  Serious: Yes (Other)
  Sender: FDA-Public Use
  Company Number: 2011AP003090

PATIENT
  Age: 53 Year
  Sex: Male

DRUGS (2)
  1. SOTALOL HCL [Concomitant]
  2. FLECAINIDE ACETATE [Suspect]
     Indication: ATRIAL FIBRILLATION
     Dosage: 50 MG;BID; 100 MG;BID; 150 MG;BID; 600 MG;1X;

REACTIONS (5)
  - ELECTROCARDIOGRAM ABNORMAL [None]
  - SELF-MEDICATION [None]
  - INCORRECT DOSE ADMINISTERED [None]
  - ATRIAL FIBRILLATION [None]
  - ATRIAL FLUTTER [None]
